FAERS Safety Report 8026627-6 (Version None)
Quarter: 2012Q1

REPORT INFORMATION
  Report Type: 
  Country: None (occurrence: None)
  Receive Date: 20120106
  Receipt Date: 20111228
  Transmission Date: 20120608
  Serious: No
  Sender: FDA-Public Use
  Company Number: US-BIOGENIDEC-2011BI048852

PATIENT
  Age: 43 Year
  Sex: Female

DRUGS (3)
  1. GILENYA [Concomitant]
  2. TYSABRI [Suspect]
     Indication: MULTIPLE SCLEROSIS
     Route: 042
     Dates: start: 20111212
  3. TYSABRI [Suspect]
     Route: 042
     Dates: start: 20071023, end: 20090818

REACTIONS (5)
  - HYPERAESTHESIA [None]
  - URINARY TRACT INFECTION [None]
  - STOMATITIS [None]
  - GASTROINTESTINAL VIRAL INFECTION [None]
  - NAUSEA [None]
